FAERS Safety Report 10488057 (Version 2)
Quarter: 2014Q4

REPORT INFORMATION
  Report Type: Spontaneous
  Country: US (occurrence: US)
  Receive Date: 20141001
  Receipt Date: 20141001
  Transmission Date: 20150528
  Serious: Yes (Hospitalization, Other)
  Sender: FDA-Public Use
  Company Number: PHEH2014US015224

PATIENT
  Sex: Male
  Weight: 112.4 kg

DRUGS (8)
  1. BUSPAR [Concomitant]
     Active Substance: BUSPIRONE HYDROCHLORIDE
     Indication: ANXIETY
  2. LITHIUM CARBONATE. [Concomitant]
     Active Substance: LITHIUM CARBONATE
     Indication: AFFECTIVE DISORDER
     Dosage: 900 MG, DAILY
     Route: 048
     Dates: start: 20140825
  3. GABAPENTIN. [Concomitant]
     Active Substance: GABAPENTIN
     Indication: AFFECTIVE DISORDER
     Dosage: 2400 MG. DAILY
     Route: 048
     Dates: start: 20140912
  4. BUSPAR [Concomitant]
     Active Substance: BUSPIRONE HYDROCHLORIDE
     Indication: AFFECTIVE DISORDER
     Dosage: 60 MG, DAILY
     Route: 048
     Dates: start: 20130809
  5. LITHIUM CARBONATE. [Concomitant]
     Active Substance: LITHIUM CARBONATE
     Indication: ANXIETY
  6. FANAPT [Suspect]
     Active Substance: ILOPERIDONE
     Indication: SCHIZOPHRENIA
     Dosage: 16 MG,DAILY
     Route: 048
     Dates: start: 20130111, end: 20140515
  7. FANAPT [Suspect]
     Active Substance: ILOPERIDONE
     Indication: DEPRESSION
  8. GABAPENTIN. [Concomitant]
     Active Substance: GABAPENTIN
     Indication: ANXIETY

REACTIONS (3)
  - Priapism [Recovering/Resolving]
  - Pain [Recovering/Resolving]
  - Penile haematoma [Recovering/Resolving]
